FAERS Safety Report 25118031 (Version 1)
Quarter: 2025Q1

REPORT INFORMATION
  Report Type: Spontaneous
  Country: US (occurrence: None)
  Receive Date: 20250324
  Receipt Date: 20250324
  Transmission Date: 20250409
  Serious: Yes (Hospitalization)
  Sender: FDA-CTU
  Company Number: None

PATIENT
  Age: 29 Year
  Sex: Male
  Weight: 68 kg

DRUGS (1)
  1. CLOZAPINE [Suspect]
     Active Substance: CLOZAPINE
     Indication: Psychotic disorder
     Dates: start: 20241025, end: 20241108

REACTIONS (5)
  - Hallucination, auditory [None]
  - Drooling [None]
  - Therapy cessation [None]
  - C-reactive protein increased [None]
  - Troponin increased [None]

NARRATIVE: CASE EVENT DATE: 20241108
